FAERS Safety Report 6651312-2 (Version None)
Quarter: 2010Q1

REPORT INFORMATION
  Report Type: 
  Country: None (occurrence: None)
  Receive Date: 20100325
  Receipt Date: 20100317
  Transmission Date: 20100710
  Serious: Yes (Life-Threatening, Hospitalization)
  Sender: FDA-Public Use
  Company Number: JP-BRISTOL-MYERS SQUIBB COMPANY-14892269

PATIENT
  Age: 68 Year
  Sex: Male
  Weight: 63 kg

DRUGS (3)
  1. ERBITUX [Suspect]
     Indication: COLON CANCER
     Dosage: MOST RECENT INF ON 19NOV09
     Route: 042
     Dates: start: 20091119, end: 20091119
  2. CHLOR-TRIMETON [Concomitant]
     Indication: PREMEDICATION
     Route: 042
     Dates: start: 20091119, end: 20091119
  3. DEXART [Concomitant]
     Indication: PREMEDICATION
     Route: 042
     Dates: start: 20091119, end: 20091119

REACTIONS (7)
  - BLOOD PRESSURE DECREASED [None]
  - CEREBRAL INFARCTION [None]
  - CIRCULATORY COLLAPSE [None]
  - GENERALISED ERYTHEMA [None]
  - INFUSION RELATED REACTION [None]
  - INTRACARDIAC THROMBUS [None]
  - THROMBOSIS IN DEVICE [None]
